FAERS Safety Report 8594303-7 (Version None)
Quarter: 2012Q3

REPORT INFORMATION
  Report Type: 
  Country: None (occurrence: None)
  Receive Date: 20120815
  Receipt Date: 20120809
  Transmission Date: 20120928
  Serious: Yes (Other)
  Sender: FDA-Public Use
  Company Number: BE-BIOGENIDEC-2012BI028317

PATIENT

DRUGS (1)
  1. AVONEX [Suspect]
     Indication: PRODUCT USED FOR UNKNOWN INDICATION
     Route: 030

REACTIONS (4)
  - MASS [None]
  - NEOPLASM MALIGNANT [None]
  - LYMPHOMA [None]
  - NUCLEAR MAGNETIC RESONANCE IMAGING ABNORMAL [None]
